FAERS Safety Report 13098101 (Version 1)
Quarter: 2017Q1

REPORT INFORMATION
  Report Type: Spontaneous
  Country: US (occurrence: US)
  Receive Date: 20170109
  Receipt Date: 20170109
  Transmission Date: 20170428
  Serious: Yes (Death)
  Sender: FDA-Public Use
  Company Number: US-MEDA-2017010009

PATIENT
  Age: 51 Year
  Sex: Female

DRUGS (13)
  1. SUVOREXANT. [Suspect]
     Active Substance: SUVOREXANT
  2. POTASSIUM CHLORIDE. [Suspect]
     Active Substance: POTASSIUM CHLORIDE
  3. CARISOPRODOL. [Suspect]
     Active Substance: CARISOPRODOL
  4. GABAPENTIN. [Suspect]
     Active Substance: GABAPENTIN
  5. OMEPRAZOLE. [Suspect]
     Active Substance: OMEPRAZOLE
  6. QUETIAPINE. [Suspect]
     Active Substance: QUETIAPINE
  7. METOPROLOL. [Suspect]
     Active Substance: METOPROLOL
  8. FUROSEMIDE. [Suspect]
     Active Substance: FUROSEMIDE
  9. AMITRIPTYLINE [Suspect]
     Active Substance: AMITRIPTYLINE
  10. BENZODIAZEPINE [Suspect]
     Active Substance: BENZODIAZEPINE
  11. DICYCLOMINE [Suspect]
     Active Substance: DICYCLOMINE HYDROCHLORIDE
  12. LINACLOTIDE [Suspect]
     Active Substance: LINACLOTIDE
  13. TRAZODONE [Suspect]
     Active Substance: TRAZODONE HYDROCHLORIDE

REACTIONS (1)
  - Completed suicide [Fatal]

NARRATIVE: CASE EVENT DATE: 2015
